FAERS Safety Report 19252474 (Version 4)
Quarter: 2021Q3

REPORT INFORMATION
  Report Type: Report from Study
  Country: PL (occurrence: PL)
  Receive Date: 20210513
  Receipt Date: 20210721
  Transmission Date: 20211014
  Serious: Yes (Hospitalization, Other)
  Sender: FDA-Public Use
  Company Number: PL-JNJFOC-20210317823

PATIENT
  Age: 53 Year
  Sex: Female
  Weight: 80 kg

DRUGS (2)
  1. BLINDED PONESIMOD [Suspect]
     Active Substance: PONESIMOD
     Route: 048
     Dates: start: 20201209, end: 202102
  2. BLINDED PONESIMOD [Suspect]
     Active Substance: PONESIMOD
     Indication: RELAPSING-REMITTING MULTIPLE SCLEROSIS
     Route: 048
     Dates: start: 20100701, end: 202102

REACTIONS (2)
  - Goitre [Recovered/Resolved with Sequelae]
  - Papillary thyroid cancer [Not Recovered/Not Resolved]

NARRATIVE: CASE EVENT DATE: 20201130
